FAERS Safety Report 20256490 (Version 1)
Quarter: 2021Q4

REPORT INFORMATION
  Report Type: Spontaneous
  Country: US (occurrence: US)
  Receive Date: 20211230
  Receipt Date: 20211230
  Transmission Date: 20220303
  Serious: Yes (Other)
  Sender: FDA-Public Use
  Company Number: US-MEDEXUS PHARMA, INC.-2021MED00392

PATIENT
  Sex: Female
  Weight: 73.482 kg

DRUGS (9)
  1. RASUVO [Suspect]
     Active Substance: METHOTREXATE SODIUM
     Indication: Rheumatoid arthritis
     Dosage: 20 MG, IN ALTERNATED THIGHS 1X/WEEK EVERY SUNDAY
     Dates: start: 202105, end: 202108
  2. RASUVO [Suspect]
     Active Substance: METHOTREXATE SODIUM
     Indication: Rheumatoid arthritis
     Dosage: 25 MG, IN ALTERNATED THIGHS 1X/WEEK EVERY SUNDAY
     Dates: start: 202108, end: 20211121
  3. SYNTHROID [Concomitant]
     Active Substance: LEVOTHYROXINE SODIUM
  4. LYRICA [Concomitant]
     Active Substance: PREGABALIN
  5. RITALIN [Concomitant]
     Active Substance: METHYLPHENIDATE HYDROCHLORIDE
  6. VITAMIN D3 [Concomitant]
     Active Substance: CHOLECALCIFEROL
  7. PROTONIX [Concomitant]
     Active Substance: PANTOPRAZOLE SODIUM
  8. ASPIRIN [Concomitant]
     Active Substance: ASPIRIN
  9. LOSARTAN [Concomitant]
     Active Substance: LOSARTAN
     Dosage: UNK, 1X/DAY

REACTIONS (12)
  - Weight decreased [Recovered/Resolved]
  - Feeling abnormal [Recovered/Resolved]
  - Asthenia [Recovered/Resolved]
  - Decreased appetite [Recovered/Resolved]
  - Depression [Recovered/Resolved]
  - Poisoning [Recovered/Resolved]
  - Rheumatoid arthritis [Recovering/Resolving]
  - Illness [Recovered/Resolved]
  - Dyspnoea [Recovered/Resolved]
  - Cough [Recovered/Resolved]
  - Diarrhoea [Recovered/Resolved]
  - Fatigue [Recovered/Resolved]

NARRATIVE: CASE EVENT DATE: 20210101
